FAERS Safety Report 18566661 (Version 2)
Quarter: 2021Q1

REPORT INFORMATION
  Report Type: Spontaneous
  Country: US (occurrence: US)
  Receive Date: 20201201
  Receipt Date: 20210106
  Transmission Date: 20210419
  Serious: Yes (Hospitalization)
  Sender: FDA-Public Use
  Company Number: US-ELI_LILLY_AND_COMPANY-US202011009583

PATIENT
  Age: 77 Year
  Sex: Male
  Weight: 77.7 kg

DRUGS (1)
  1. BAMLANIVIMAB. [Suspect]
     Active Substance: BAMLANIVIMAB
     Indication: COVID-19 PROPHYLAXIS
     Dosage: UNK, SINGLE
     Route: 065
     Dates: start: 20201118, end: 20201118

REACTIONS (9)
  - Pneumonia [Unknown]
  - Body temperature increased [Unknown]
  - Decreased appetite [Unknown]
  - Confusional state [Unknown]
  - Pain [Unknown]
  - Malaise [Unknown]
  - Condition aggravated [Unknown]
  - Pulmonary embolism [Unknown]
  - Chills [Unknown]

NARRATIVE: CASE EVENT DATE: 20201206
